FAERS Safety Report 19840337 (Version 1)
Quarter: 2021Q3

REPORT INFORMATION
  Report Type: Spontaneous
  Country: US (occurrence: US)
  Receive Date: 20210914
  Receipt Date: 20210914
  Transmission Date: 20211014
  Serious: No
  Sender: FDA-Public Use
  Company Number: None

PATIENT
  Sex: Female
  Weight: 100.7 kg

DRUGS (19)
  1. CYMBALTA [Concomitant]
     Active Substance: DULOXETINE HYDROCHLORIDE
  2. PROAIR HFA [Concomitant]
     Active Substance: ALBUTEROL SULFATE
  3. LYRICA [Concomitant]
     Active Substance: PREGABALIN
  4. XANAX [Concomitant]
     Active Substance: ALPRAZOLAM
  5. SYNTHROID [Concomitant]
     Active Substance: LEVOTHYROXINE SODIUM
  6. MURO 128 [Concomitant]
     Active Substance: SODIUM CHLORIDE
  7. VITAMIN B12 [Concomitant]
     Active Substance: CYANOCOBALAMIN
  8. PRILOSEC [Concomitant]
     Active Substance: OMEPRAZOLE MAGNESIUM
  9. BACLOFEN. [Concomitant]
     Active Substance: BACLOFEN
  10. ALBUTEROL SULFATE. [Concomitant]
     Active Substance: ALBUTEROL SULFATE
  11. TRELEGY ELLIPTS [Concomitant]
  12. TRAZODONE [Concomitant]
     Active Substance: TRAZODONE HYDROCHLORIDE
  13. CYTOTAC [Concomitant]
  14. SINGULAIR [Concomitant]
     Active Substance: MONTELUKAST SODIUM
  15. TEGRETOL [Concomitant]
     Active Substance: CARBAMAZEPINE
  16. NYSTOP [Concomitant]
     Active Substance: NYSTATIN
  17. CARBIDOPA?LEVODOPA ER [Concomitant]
     Active Substance: CARBIDOPA\LEVODOPA
  18. PEPCID [Concomitant]
     Active Substance: FAMOTIDINE
  19. AVONEX PEN [Suspect]
     Active Substance: INTERFERON BETA-1A
     Indication: MULTIPLE SCLEROSIS
     Dosage: ?          OTHER STRENGTH:30MCG/0.5ML;?
     Route: 042
     Dates: start: 20190711

REACTIONS (2)
  - Influenza like illness [None]
  - Injection site scar [None]
